FAERS Safety Report 12009896 (Version 1)
Quarter: 2016Q1

REPORT INFORMATION
  Report Type: Spontaneous
  Country: US (occurrence: None)
  Receive Date: 20160204
  Receipt Date: 20160204
  Transmission Date: 20160526
  Serious: No
  Sender: FDA-Public Use
  Company Number: None

PATIENT
  Age: 56 Year
  Sex: Female

DRUGS (2)
  1. CELEBREX [Concomitant]
     Active Substance: CELECOXIB
  2. CAPECITABINE 500MG TAB [Suspect]
     Active Substance: CAPECITABINE
     Indication: RECTAL CANCER
     Dosage: 1500 MG, QPM D1-14 OF 21 CYCLE, ORAL
     Dates: start: 20150210

REACTIONS (4)
  - Tongue disorder [None]
  - Glossodynia [None]
  - Dry eye [None]
  - Hypoaesthesia [None]

NARRATIVE: CASE EVENT DATE: 201601
